FAERS Safety Report 4695091-7 (Version None)
Quarter: 2005Q2

REPORT INFORMATION
  Report Type: 
  Country: None (occurrence: None)
  Receive Date: 20050620
  Receipt Date: 20050610
  Transmission Date: 20051028
  Serious: Yes (Disabling)
  Sender: FDA-Public Use
  Company Number: CH-MERCK-0506CHE00006

PATIENT
  Age: 64 Year
  Sex: Female
  Weight: 72 kg

DRUGS (8)
  1. FOSAMAX [Suspect]
     Indication: OSTEONECROSIS
     Route: 048
     Dates: start: 20010801, end: 20050407
  2. CALCIUM CARBONATE [Concomitant]
     Indication: OSTEOPOROSIS
     Route: 048
     Dates: start: 20010801
  3. CHONDROITIN SULFATE SODIUM [Concomitant]
     Indication: ARTHRITIS
     Route: 048
     Dates: start: 20030101
  4. TIMOPTIC [Concomitant]
     Indication: GLAUCOMA
     Route: 047
     Dates: start: 19750101
  5. GINKGO BILOBA EXTRACT [Concomitant]
     Route: 048
  6. ASCORBIC ACID [Concomitant]
     Route: 058
     Dates: start: 19750101
  7. VITAMIN A AND VITAMIN E [Concomitant]
     Indication: VISUAL FIELD DEFECT
     Route: 048
     Dates: start: 20010101
  8. VINBURNINE [Concomitant]
     Route: 048
     Dates: start: 20040101, end: 20050511

REACTIONS (3)
  - ARTHRALGIA [None]
  - BONE DISORDER [None]
  - BONE PAIN [None]
